FAERS Safety Report 24790769 (Version 1)
Quarter: 2024Q4

REPORT INFORMATION
  Report Type: Spontaneous
  Country: US (occurrence: US)
  Receive Date: 20241230
  Receipt Date: 20241230
  Transmission Date: 20250114
  Serious: No
  Sender: DR REDDYS
  Company Number: US-DRL-USA-SPO/USA/24/0018910

PATIENT
  Age: 15 Year
  Sex: Female

DRUGS (2)
  1. ACCUTANE [Suspect]
     Active Substance: ISOTRETINOIN
     Indication: Product used for unknown indication
     Dosage: ACCUTANE (ISOTRETINOIN CAPSULES, USP) 40 MG, BOX OF 30 (3 PACKS OF 10 CAPSULES)
     Route: 065
     Dates: start: 20241001
  2. ACCUTANE [Suspect]
     Active Substance: ISOTRETINOIN
     Dosage: ACCUTANE (ISOTRETINOIN CAPSULES, USP) 30 MG?NDC NUMBER: 72143-0233-30
     Route: 048

REACTIONS (1)
  - Product use issue [Unknown]

NARRATIVE: CASE EVENT DATE: 20241216
